FAERS Safety Report 10157658 (Version 1)
Quarter: 2014Q2

REPORT INFORMATION
  Report Type: Spontaneous
  Country: US (occurrence: US)
  Receive Date: 20140507
  Receipt Date: 20140507
  Transmission Date: 20141212
  Serious: Yes (Life-Threatening, Hospitalization)
  Sender: FDA-Public Use
  Company Number: PHHY2014US052713

PATIENT
  Age: 54 Year
  Sex: Male

DRUGS (6)
  1. MINOCYCLINE [Suspect]
     Indication: DERMAL CYST
  2. ATORVASTATIN [Interacting]
  3. OMEPRAZOLE [Concomitant]
  4. ASA [Concomitant]
  5. FISH OIL [Concomitant]
  6. VITAMIN D NOS [Concomitant]

REACTIONS (13)
  - Autoimmune hepatitis [Recovering/Resolving]
  - Chest pain [Recovered/Resolved]
  - Body temperature increased [Unknown]
  - Periportal oedema [Recovering/Resolving]
  - Gallbladder disorder [Unknown]
  - Back pain [Recovered/Resolved]
  - Hyperhidrosis [Unknown]
  - Dyspnoea [Recovering/Resolving]
  - Skin discolouration [Recovering/Resolving]
  - Heart rate increased [Recovering/Resolving]
  - Blood pressure decreased [Recovering/Resolving]
  - Haemodynamic instability [Recovering/Resolving]
  - Drug interaction [Unknown]
